FAERS Safety Report 7930680-5 (Version None)
Quarter: 2011Q4

REPORT INFORMATION
  Report Type: 
  Country: None (occurrence: None)
  Receive Date: 20111121
  Receipt Date: 20111115
  Transmission Date: 20120403
  Serious: Yes (Death, Hospitalization, Other)
  Sender: FDA-Public Use
  Company Number: DE-CELGENEUS-062-21880-10081969

PATIENT
  Age: 24 Year
  Sex: Male
  Weight: 55.7 kg

DRUGS (6)
  1. REVLIMID [Suspect]
     Dosage: 25 MILLIGRAM
     Route: 048
     Dates: start: 20090701, end: 20090721
  2. LEVOFLOXACIN [Concomitant]
     Indication: PROPHYLAXIS
     Dosage: 50 MILLIGRAM
     Route: 048
  3. ACYCLOVIR [Concomitant]
     Indication: PROPHYLAXIS
     Dosage: 200 MILLIGRAM
     Route: 048
  4. REVLIMID [Suspect]
     Dosage: 25 MILLIGRAM
     Route: 048
     Dates: start: 20090730, end: 20090813
  5. COTRIM DS [Concomitant]
     Indication: PROPHYLAXIS
     Route: 048
  6. FRAGMIN [Concomitant]
     Indication: THROMBOSIS PROPHYLAXIS
     Route: 058

REACTIONS (5)
  - PRESYNCOPE [None]
  - THROMBOSIS [None]
  - HODGKIN'S DISEASE [None]
  - SUPERIOR VENA CAVA SYNDROME [None]
  - PLEURAL EFFUSION [None]
